FAERS Safety Report 4411278-2 (Version None)
Quarter: 2004Q3

REPORT INFORMATION
  Report Type: 
  Country: None (occurrence: None)
  Receive Date: 20040727
  Receipt Date: 20040713
  Transmission Date: 20050211
  Serious: Yes (Hospitalization)
  Sender: FDA-Public Use
  Company Number: 2004PK01066

PATIENT
  Age: 60 Year
  Sex: Female
  Weight: 85 kg

DRUGS (3)
  1. NOLVADEX [Suspect]
     Indication: BREAST CANCER
     Dosage: 20 MG DAILY PO
     Route: 048
     Dates: start: 20000616
  2. CHONDROSULF [Concomitant]
  3. TRAMADOL HCL [Concomitant]

REACTIONS (2)
  - CERVICAL CYST [None]
  - UTERINE POLYP [None]
